FAERS Safety Report 15735900 (Version 2)
Quarter: 2019Q1

REPORT INFORMATION
  Report Type: Spontaneous
  Country: US (occurrence: US)
  Receive Date: 20181218
  Receipt Date: 20190309
  Transmission Date: 20190417
  Serious: Yes (Other)
  Sender: FDA-Public Use
  Company Number: PHEH2018US053268

PATIENT
  Sex: Male

DRUGS (1)
  1. TASIGNA [Suspect]
     Active Substance: NILOTINIB
     Indication: CHRONIC MYELOID LEUKAEMIA
     Dosage: 300 MG, BID
     Route: 048
     Dates: start: 201103, end: 201105

REACTIONS (16)
  - Glaucoma [Unknown]
  - Thrombosis [Unknown]
  - Peripheral arterial occlusive disease [Unknown]
  - Neuropathy peripheral [Unknown]
  - Anxiety [Unknown]
  - Weight decreased [Unknown]
  - Leukocytosis [Unknown]
  - Arthralgia [Unknown]
  - Lymphadenopathy [Unknown]
  - Skin burning sensation [Unknown]
  - Embolism [Unknown]
  - Pain in extremity [Unknown]
  - Migraine [Unknown]
  - Retinal detachment [Unknown]
  - Sinusitis [Unknown]
  - Gastrooesophageal reflux disease [Unknown]

NARRATIVE: CASE EVENT DATE: 2014
